FAERS Safety Report 7940035-5 (Version None)
Quarter: 2011Q4

REPORT INFORMATION
  Report Type: 
  Country: None (occurrence: None)
  Receive Date: 20111125
  Receipt Date: 20111116
  Transmission Date: 20120403
  Serious: Yes (Hospitalization, Other)
  Sender: FDA-Public Use
  Company Number: JP-SANOFI-AVENTIS-2011SA050057

PATIENT
  Age: 34 Year
  Sex: Female
  Weight: 56 kg

DRUGS (15)
  1. DEXTROSE IN LACTATED RINGER'S [Concomitant]
     Route: 041
     Dates: start: 20090326, end: 20090326
  2. AVASTIN [Suspect]
     Indication: COLON CANCER
     Route: 041
     Dates: start: 20090310, end: 20090310
  3. KYTRIL [Concomitant]
     Indication: PREMEDICATION
     Route: 041
     Dates: start: 20090127, end: 20090324
  4. LASIX [Concomitant]
     Indication: OEDEMA PERIPHERAL
     Route: 048
     Dates: start: 20090224
  5. BIFIDOBACTERIUM BIFIDUM/ENTEROCOCCUS FAECIUM [Concomitant]
     Indication: CONSTIPATION
     Route: 048
     Dates: start: 20090224
  6. MAGNESIUM OXIDE [Concomitant]
     Indication: CONSTIPATION
     Route: 048
     Dates: start: 20090224
  7. FLUOROURACIL [Suspect]
     Route: 041
     Dates: end: 20090324
  8. DEXAMETHASONE SODIUM PHOSPHATE [Concomitant]
     Indication: PREMEDICATION
     Route: 041
     Dates: start: 20090127, end: 20090324
  9. PRIMPERAN TAB [Concomitant]
     Indication: ADVERSE EVENT
     Route: 048
     Dates: start: 20090224
  10. DICLOFENAC SODIUM [Concomitant]
     Indication: PAIN
     Route: 048
     Dates: start: 20090224
  11. MUCOSTA [Concomitant]
     Indication: PAIN
     Route: 048
     Dates: start: 20090224
  12. POTASSIUM CHLORIDE [Concomitant]
     Indication: FLUID REPLACEMENT
     Route: 041
     Dates: start: 20090327, end: 20090328
  13. FLUOROURACIL [Suspect]
     Indication: COLON CANCER
     Route: 040
     Dates: start: 20090127
  14. OXALIPLATIN [Suspect]
     Indication: COLON CANCER
     Route: 041
     Dates: start: 20090127, end: 20090324
  15. LEVOLEUCOVORIN CALCIUM [Concomitant]
     Indication: COLON CANCER
     Route: 041
     Dates: start: 20090127, end: 20090324

REACTIONS (5)
  - COLON CANCER METASTATIC [None]
  - HYPERAMMONAEMIA [None]
  - HEPATIC FAILURE [None]
  - CONDITION AGGRAVATED [None]
  - VENOUS THROMBOSIS [None]
